FAERS Safety Report 9266168 (Version 1)
Quarter: 2013Q2

REPORT INFORMATION
  Report Type: Spontaneous
  Country: CA (occurrence: CA)
  Receive Date: 20130502
  Receipt Date: 20130502
  Transmission Date: 20140414
  Serious: Yes (Other)
  Sender: FDA-Public Use
  Company Number: CA-GE HEALTHCARE MEDICAL DIAGNOSTICS-MYVW-PR-1304S-0041

PATIENT
  Age: 38 Year
  Sex: Female
  Weight: 86.26 kg

DRUGS (3)
  1. MYOVIEW [Suspect]
     Indication: NON-CARDIAC CHEST PAIN
     Route: 042
     Dates: start: 20130418, end: 20130418
  2. MYOVIEW [Suspect]
     Indication: DIAGNOSTIC PROCEDURE
     Route: 042
     Dates: start: 20130419, end: 20130419
  3. PERSANTINE [Concomitant]
     Dates: start: 20130418

REACTIONS (4)
  - Swollen tongue [Recovered/Resolved]
  - Erythema [Recovered/Resolved]
  - Headache [Recovered/Resolved]
  - Nausea [Recovered/Resolved]
